FAERS Safety Report 7608692-0 (Version None)
Quarter: 2011Q3

REPORT INFORMATION
  Report Type: 
  Country: None (occurrence: None)
  Receive Date: 20110706
  Receipt Date: 20110621
  Transmission Date: 20111222
  Serious: Yes (Hospitalization)
  Sender: FDA-Public Use
  Company Number: 2011MA007885

PATIENT
  Age: 29 Year
  Sex: Female
  Weight: 73 kg

DRUGS (1)
  1. PHENTERMINE HYDROCHLORIDE [Suspect]
     Indication: OBESITY
     Dosage: 37.5 MG, QD

REACTIONS (5)
  - PULMONARY ARTERIAL HYPERTENSION [None]
  - RIGHT VENTRICULAR HYPERTROPHY [None]
  - TRICUSPID VALVE INCOMPETENCE [None]
  - ALANINE AMINOTRANSFERASE INCREASED [None]
  - CARDIAC VENTRICULAR DISORDER [None]
